FAERS Safety Report 7458324-X (Version None)
Quarter: 2011Q2

REPORT INFORMATION
  Report Type: 
  Country: None (occurrence: None)
  Receive Date: 20110504
  Receipt Date: 20110428
  Transmission Date: 20111010
  Serious: Yes (Other)
  Sender: FDA-Public Use
  Company Number: SE-B.I. PHARMACEUTICALS,INC./RIDGEFIELD-2011-SW-00143SW

PATIENT
  Sex: Female

DRUGS (13)
  1. KALCIPOS-D [Concomitant]
  2. ORUDIS GEL [Concomitant]
  3. ARTELAC [Concomitant]
  4. PREDNISOLONE [Concomitant]
  5. OMEPRAZOL [Concomitant]
     Dosage: 20 MG
  6. ENBREL [Concomitant]
     Dosage: FORMULATION: INJECTION
  7. ARICEPT [Concomitant]
  8. FOLACIN [Concomitant]
  9. IBRUPROFEN [Concomitant]
  10. OPTINATE [Concomitant]
  11. PRADAXA [Suspect]
     Indication: THROMBOSIS PROPHYLAXIS
     Dosage: 220 MG
  12. METHOTREXATE [Concomitant]
  13. VISCOTEARS [Concomitant]

REACTIONS (1)
  - DEEP VEIN THROMBOSIS [None]
